FAERS Safety Report 16156802 (Version 1)
Quarter: 2019Q2

REPORT INFORMATION
  Report Type: Spontaneous
  Country: US (occurrence: US)
  Receive Date: 20190404
  Receipt Date: 20190404
  Transmission Date: 20190711
  Serious: Yes (Other)
  Sender: FDA-Public Use
  Company Number: PHEH2019US013819

PATIENT

DRUGS (3)
  1. LETROZOLE. [Suspect]
     Active Substance: LETROZOLE
     Indication: BREAST CANCER METASTATIC
     Dosage: UNK
     Route: 065
     Dates: start: 20170712
  2. ZOMETA [Suspect]
     Active Substance: ZOLEDRONIC ACID
     Indication: BREAST CANCER METASTATIC
     Dosage: UNK
     Route: 042
     Dates: start: 20170712
  3. IBRANCE [Suspect]
     Active Substance: PALBOCICLIB
     Indication: BREAST CANCER METASTATIC
     Dosage: UNK
     Route: 065
     Dates: start: 20170712

REACTIONS (10)
  - Weight decreased [Unknown]
  - Metastases to central nervous system [Unknown]
  - Clostridium difficile infection [Unknown]
  - Nausea [Unknown]
  - Metastases to spine [Recovered/Resolved]
  - Memory impairment [Unknown]
  - Vomiting [Unknown]
  - Vitamin D decreased [Unknown]
  - Dermatitis allergic [Unknown]
  - Blood calcium decreased [Unknown]
